FAERS Safety Report 23433147 (Version 1)
Quarter: 2024Q1

REPORT INFORMATION
  Report Type: Spontaneous
  Country: GB (occurrence: GB)
  Receive Date: 20240123
  Receipt Date: 20240123
  Transmission Date: 20240409
  Serious: Yes (Hospitalization, Other)
  Sender: FDA-Public Use
  Company Number: GB-BAXTER-2024BAX010966

PATIENT
  Age: 82 Year
  Sex: Male

DRUGS (2)
  1. DIANEAL [Suspect]
     Active Substance: CALCIUM CHLORIDE\DEXTROSE\MAGNESIUM CHLORIDE\SODIUM CHLORIDE\SODIUM LACTATE
     Dosage: 3 UNITS, 7 TIMES PER WEEK
     Route: 033
  2. EXTRANEAL [Suspect]
     Active Substance: CALCIUM CHLORIDE\ICODEXTRIN\MAGNESIUM CHLORIDE\SODIUM CHLORIDE\SODIUM LACTATE
     Dosage: 1 UNIT, 7 TIMES PER WEEK
     Route: 033

REACTIONS (4)
  - Pneumonia [Unknown]
  - Cough [Unknown]
  - Fatigue [Unknown]
  - Speech disorder [Unknown]

NARRATIVE: CASE EVENT DATE: 20240111
